FAERS Safety Report 18158985 (Version 1)
Quarter: 2020Q3

REPORT INFORMATION
  Report Type: Spontaneous
  Country: US (occurrence: US)
  Receive Date: 20200817
  Receipt Date: 20200817
  Transmission Date: 20201103
  Serious: No
  Sender: FDA-Public Use
  Company Number: US-ELI_LILLY_AND_COMPANY-US202008005382

PATIENT
  Age: 70 Year
  Sex: Male

DRUGS (2)
  1. HUMULIN N [Suspect]
     Active Substance: INSULIN HUMAN
     Indication: TYPE 2 DIABETES MELLITUS
     Dosage: 40 U, BID(SLIDING SCALE UP TO 40 UNITS 2X DAY)
     Route: 065
     Dates: start: 2019
  2. HUMULIN R [Suspect]
     Active Substance: INSULIN HUMAN
     Indication: BLOOD GLUCOSE INCREASED
     Dosage: 15 U, PRN(3 OR 4 TIMES A DAY,USING MORE ALSO)
     Route: 065

REACTIONS (2)
  - Wrong technique in product usage process [Not Recovered/Not Resolved]
  - Blood glucose increased [Not Recovered/Not Resolved]

NARRATIVE: CASE EVENT DATE: 202007
